FAERS Safety Report 9375611 (Version 2)
Quarter: 2013Q3

REPORT INFORMATION
  Report Type: Spontaneous
  Country: DE (occurrence: DE)
  Receive Date: 20130628
  Receipt Date: 20130704
  Transmission Date: 20140515
  Serious: Yes (Other)
  Sender: FDA-Public Use
  Company Number: DE-GE HEALTHCARE MEDICAL DIAGNOSTICS-VISP-NO-1305S-0617

PATIENT
  Sex: Male
  Weight: 97 kg

DRUGS (2)
  1. VISIPAQUE [Suspect]
     Indication: ABDOMINAL NEOPLASM
     Route: 042
     Dates: start: 20130514, end: 20130514
  2. VISIPAQUE [Suspect]
     Indication: DIAGNOSTIC PROCEDURE

REACTIONS (2)
  - Extravasation [Recovered/Resolved]
  - No adverse event [Recovered/Resolved]
